FAERS Safety Report 5030468-1 (Version None)
Quarter: 2006Q2

REPORT INFORMATION
  Report Type: 
  Country: None (occurrence: None)
  Receive Date: 20060614
  Receipt Date: 20060531
  Transmission Date: 20061013
  Serious: No
  Sender: FDA-Public Use
  Company Number: 2006-143478-NL

PATIENT
  Age: 77 Year
  Sex: Male

DRUGS (12)
  1. DANAPAROID SODIUM [Suspect]
     Indication: DISSEMINATED INTRAVASCULAR COAGULATION
     Route: 042
     Dates: start: 20060421, end: 20060427
  2. GABEXATE MESILATE [Concomitant]
  3. ANTITHROMBIN III [Concomitant]
  4. BROMHEXINE HYDROCHLORIDE [Concomitant]
  5. DOPAMINE HCL [Concomitant]
  6. DOBUTAMINE HCL [Concomitant]
  7. NORADRENALINE [Concomitant]
  8. ALBUMIN (HUMAN) [Concomitant]
  9. PRIMAXIN [Concomitant]
  10. CLINDAMYCIN PALMITATE HYDROCHLORIDE [Concomitant]
  11. OMEPRAZOLE [Concomitant]
  12. PHENOBARBITAL [Concomitant]

REACTIONS (3)
  - CONDITION AGGRAVATED [None]
  - HAEMORRHAGE [None]
  - RENAL FAILURE [None]
